FAERS Safety Report 10642254 (Version 1)
Quarter: 2014Q4

REPORT INFORMATION
  Report Type: Spontaneous
  Country: IN (occurrence: None)
  Receive Date: 20141208
  Receipt Date: 20141208
  Transmission Date: 20150529
  Serious: Yes (Hospitalization)
  Sender: FDA-Public Use
  Company Number: None

PATIENT
  Age: 76 Year
  Sex: Male
  Weight: 81 kg

DRUGS (12)
  1. AKURIT-4 [Suspect]
     Active Substance: ETHAMBUTOL HYDROCHLORIDE\ISONIAZID\PYRAZINAMIDE\RIFAMYCIN
     Indication: TUBERCULOSIS
     Dosage: 3PILLS, OD, ORAL
     Route: 048
     Dates: start: 20141201, end: 20141202
  2. TIGECYCLINE [Concomitant]
     Active Substance: TIGECYCLINE
  3. PANTOPRAZOLE [Concomitant]
     Active Substance: PANTOPRAZOLE SODIUM
  4. FLUCONAZOLE 200MG [Suspect]
     Active Substance: FLUCONAZOLE
  5. HYDROCORTISONE. [Concomitant]
     Active Substance: HYDROCORTISONE
  6. ECOSPIRIN [Concomitant]
  7. MONTELUKAST [Concomitant]
     Active Substance: MONTELUKAST SODIUM
  8. RIFAMPIN. [Suspect]
     Active Substance: RIFAMPIN
     Indication: PROPHYLAXIS
     Dosage: OD, INTRAVENOUS
     Route: 042
     Dates: start: 20141201
  9. ETHAMBUTOL [Suspect]
     Active Substance: ETHAMBUTOL HYDROCHLORIDE
  10. ENOXAPARIN [Concomitant]
     Active Substance: ENOXAPARIN
  11. PYRAZINAMIDE. [Suspect]
     Active Substance: PYRAZINAMIDE
  12. BENADON [Concomitant]
     Active Substance: PYRIDOXINE HYDROCHLORIDE

REACTIONS (1)
  - Liver function test abnormal [None]

NARRATIVE: CASE EVENT DATE: 20141201
